FAERS Safety Report 6658664-8 (Version None)
Quarter: 2010Q1

REPORT INFORMATION
  Report Type: 
  Country: None (occurrence: None)
  Receive Date: 20100330
  Receipt Date: 20100315
  Transmission Date: 20100710
  Serious: Yes (Other)
  Sender: FDA-Public Use
  Company Number: PHHY2010US16300

PATIENT
  Sex: Female

DRUGS (1)
  1. ZADITOR [Suspect]
     Dosage: UNK

REACTIONS (2)
  - HEART RATE IRREGULAR [None]
  - THROAT TIGHTNESS [None]
